FAERS Safety Report 9867789 (Version 2)
Quarter: 2014Q1

REPORT INFORMATION
  Report Type: Report from Study
  Country: US (occurrence: US)
  Receive Date: 20140204
  Receipt Date: 20140204
  Transmission Date: 20141002
  Serious: Yes (Hospitalization, Other)
  Sender: FDA-Public Use
  Company Number: US-SANOFI-AVENTIS-2012SA058792

PATIENT
  Age: 49 Year
  Sex: Female
  Weight: 80.3 kg

DRUGS (9)
  1. TERIFLUNOMIDE [Suspect]
     Indication: MULTIPLE SCLEROSIS RELAPSE
     Route: 048
     Dates: start: 20120120
  2. METHYLPHENIDATE [Concomitant]
     Indication: ATTENTION DEFICIT/HYPERACTIVITY DISORDER
     Route: 048
     Dates: start: 2008
  3. LISINOPRIL [Concomitant]
     Indication: HYPERTENSION
     Route: 048
     Dates: start: 20080822
  4. HYDROCODONE [Concomitant]
     Indication: PAIN
     Route: 048
     Dates: start: 20090806
  5. LEXAPRO [Concomitant]
     Indication: DEPRESSION
     Route: 048
     Dates: start: 200907
  6. ADVIL [Concomitant]
     Indication: PAIN IN EXTREMITY
     Route: 048
     Dates: start: 20100310
  7. METHOCARBAMOL [Concomitant]
     Indication: MUSCLE STRAIN
     Route: 048
     Dates: start: 20100902
  8. OXYCODONE/APAP [Concomitant]
     Indication: MUSCLE STRAIN
     Route: 048
     Dates: start: 20100902
  9. MULTIVITAMINS [Concomitant]
     Indication: NUTRITIONAL SUPPLEMENTATION
     Dosage: DOSE:1 UNIT(S)
     Route: 048
     Dates: start: 20111031

REACTIONS (3)
  - Invasive lobular breast carcinoma [Recovered/Resolved]
  - Sepsis [Recovered/Resolved]
  - Abscess jaw [Recovered/Resolved]
